FAERS Safety Report 5840162-2 (Version None)
Quarter: 2008Q3

REPORT INFORMATION
  Report Type: 
  Country: None (occurrence: None)
  Receive Date: 20080811
  Receipt Date: 20080729
  Transmission Date: 20090109
  Serious: Yes (Hospitalization)
  Sender: FDA-Public Use
  Company Number: ES-ELI_LILLY_AND_COMPANY-ES200807005970

PATIENT
  Age: 63 Year
  Sex: Female

DRUGS (3)
  1. FORTEO [Suspect]
     Indication: OSTEOPOROSIS
     Dosage: 20 UG, UNKNOWN
     Route: 058
     Dates: start: 20080625, end: 20080722
  2. FORTEO [Suspect]
     Dosage: UNK,UNK
     Route: 065
     Dates: start: 20080725
  3. ATENOLOL [Concomitant]
     Indication: HYPERTENSION
     Dosage: 100 UNK, UNKNOWN
     Route: 065

REACTIONS (2)
  - BLOOD PRESSURE INCREASED [None]
  - HYPERTENSION [None]
